FAERS Safety Report 5532090-7 (Version None)
Quarter: 2007Q4

REPORT INFORMATION
  Report Type: 
  Country: None (occurrence: None)
  Receive Date: 20071203
  Receipt Date: 20071130
  Transmission Date: 20080405
  Serious: Yes (Life-Threatening, Other)
  Sender: FDA-Public Use
  Company Number: B0497852A

PATIENT
  Age: 43 Year
  Sex: Female
  Weight: 52 kg

DRUGS (2)
  1. NELARABINE [Suspect]
     Dosage: 1500MG PER DAY
     Dates: start: 20071116
  2. ENALAPRIL [Concomitant]
     Indication: HYPERTENSION

REACTIONS (6)
  - BLOOD PRESSURE DIASTOLIC INCREASED [None]
  - DIASTOLIC DYSFUNCTION [None]
  - DYSPNOEA [None]
  - HYPERTENSION [None]
  - OLIGURIA [None]
  - TACHYCARDIA [None]
